FAERS Safety Report 4874351-0 (Version None)
Quarter: 2006Q1

REPORT INFORMATION
  Report Type: 
  Country: None (occurrence: None)
  Receive Date: 20060104
  Receipt Date: 20051222
  Transmission Date: 20060701
  Serious: Yes (Other)
  Sender: FDA-Public Use
  Company Number: 2005172666

PATIENT
  Sex: Male

DRUGS (1)
  1. ZMAX [Suspect]
     Indication: ILL-DEFINED DISORDER

REACTIONS (6)
  - COUGH [None]
  - DIARRHOEA [None]
  - FAECES PALE [None]
  - FEELING ABNORMAL [None]
  - HAEMOPTYSIS [None]
  - URINARY TRACT INFECTION [None]
